FAERS Safety Report 6195168-3 (Version None)
Quarter: 2009Q2

REPORT INFORMATION
  Report Type: 
  Country: None (occurrence: None)
  Receive Date: 20090515
  Receipt Date: 20090506
  Transmission Date: 20091009
  Serious: Yes (Death, Hospitalization)
  Sender: FDA-Public Use
  Company Number: 2008-183584-NL

PATIENT
  Age: 27 Year
  Sex: Female
  Weight: 120.7 kg

DRUGS (1)
  1. NUVARING [Suspect]
     Dates: start: 20060301, end: 20061001

REACTIONS (12)
  - AGGRESSION [None]
  - APNOEA [None]
  - BURNING SENSATION [None]
  - CARDIAC ARREST [None]
  - CYSTITIS [None]
  - DEATH OF RELATIVE [None]
  - DEEP VEIN THROMBOSIS [None]
  - DIZZINESS [None]
  - EPISTAXIS [None]
  - FALL [None]
  - PULMONARY EMBOLISM [None]
  - WALKING AID USER [None]
